FAERS Safety Report 25409078 (Version 2)
Quarter: 2025Q3

REPORT INFORMATION
  Report Type: Spontaneous
  Country: CA (occurrence: CA)
  Receive Date: 20250607
  Receipt Date: 20250705
  Transmission Date: 20251021
  Serious: Yes (Other)
  Sender: CELLTRION
  Company Number: CA-PFIZER INC-202500113632

PATIENT

DRUGS (18)
  1. INFLECTRA [Suspect]
     Active Substance: INFLIXIMAB-DYYB
     Indication: Ankylosing spondylitis
     Route: 042
     Dates: start: 20250429
  2. INFLECTRA [Suspect]
     Active Substance: INFLIXIMAB-DYYB
     Route: 042
     Dates: start: 20250626
  3. ACLASTA [Concomitant]
     Active Substance: ZOLEDRONIC ACID
  4. ARIPIPRAZOLE [Concomitant]
     Active Substance: ARIPIPRAZOLE
     Route: 048
  5. COENZYME Q10 [Concomitant]
     Active Substance: DIETARY SUPPLEMENT\UBIDECARENONE
  6. LEFLUNOMIDE [Concomitant]
     Active Substance: LEFLUNOMIDE
     Route: 048
  7. LORAZEPAM [Concomitant]
     Active Substance: LORAZEPAM
  8. MELATONIN [Concomitant]
     Active Substance: MELATONIN
     Route: 048
  9. NABILONE [Concomitant]
     Active Substance: NABILONE
     Route: 048
  10. NALOXONE [Concomitant]
     Active Substance: NALOXONE
  11. PREGABALIN [Concomitant]
     Active Substance: PREGABALIN
  12. PREGABALIN [Concomitant]
     Active Substance: PREGABALIN
     Route: 048
  13. SYMBICORT [Concomitant]
     Active Substance: BUDESONIDE\FORMOTEROL FUMARATE DIHYDRATE
  14. SPIRIVA [Concomitant]
     Active Substance: TIOTROPIUM BROMIDE MONOHYDRATE
  15. TUMS [Concomitant]
     Active Substance: CALCIUM CARBONATE
  16. CHOLECALCIFEROL [Concomitant]
     Active Substance: CHOLECALCIFEROL
     Route: 048
  17. VYVANSE [Concomitant]
     Active Substance: LISDEXAMFETAMINE DIMESYLATE
     Route: 048
  18. ZINC [Concomitant]
     Active Substance: ZINC
     Route: 048

REACTIONS (1)
  - Foot operation [Unknown]

NARRATIVE: CASE EVENT DATE: 20250516
